FAERS Safety Report 6750581-8 (Version None)
Quarter: 2010Q2

REPORT INFORMATION
  Report Type: 
  Country: None (occurrence: None)
  Receive Date: 20100601
  Receipt Date: 20100518
  Transmission Date: 20101027
  Serious: Yes (Hospitalization, Other)
  Sender: FDA-Public Use
  Company Number: FR-MYLANLABS-2010S1008765

PATIENT
  Age: 76 Year
  Sex: Female

DRUGS (8)
  1. CARBAMAZEPINE [Suspect]
     Indication: MYOCLONIC EPILEPSY
     Dosage: DOSE INCREASED AFTER THE FIRST HOSPITAL ADMISSION
     Route: 065
  2. LAMOTRIGINE [Suspect]
     Indication: MYOCLONIC EPILEPSY
     Route: 065
  3. VALPROIC ACID [Suspect]
     Indication: MYOCLONIC EPILEPSY
     Route: 065
  4. PHENOBARBITAL [Concomitant]
     Indication: EPILEPSY
     Route: 065
  5. AMANTADINE HCL [Concomitant]
     Indication: PARKINSON'S DISEASE
     Route: 065
  6. LEVODOPA [Concomitant]
     Indication: PARKINSON'S DISEASE
     Route: 065
  7. CITALOPRAM HYDROBROMIDE [Concomitant]
     Route: 065
  8. MIANSERIN [Concomitant]
     Route: 065

REACTIONS (4)
  - GRAND MAL CONVULSION [None]
  - MYOCLONUS [None]
  - PSYCHOMOTOR SKILLS IMPAIRED [None]
  - SOMNOLENCE [None]
